FAERS Safety Report 16939864 (Version 2)
Quarter: 2020Q1

REPORT INFORMATION
  Report Type: Report from Study
  Country: US (occurrence: US)
  Receive Date: 20191021
  Receipt Date: 20200113
  Transmission Date: 20200409
  Serious: Yes (Other)
  Sender: FDA-Public Use
  Company Number: US-ROCHE-2437880

PATIENT
  Sex: Female

DRUGS (1)
  1. OCREVUS [Suspect]
     Active Substance: OCRELIZUMAB
     Indication: RELAPSING MULTIPLE SCLEROSIS
     Dosage: ON 29/MAR/2019, RECEIVED LAST INFUSION OF OCRELIZUMAB.
     Route: 042
     Dates: start: 20190315

REACTIONS (1)
  - JC polyomavirus test positive [Unknown]
